FAERS Safety Report 12825714 (Version 2)
Quarter: 2016Q4

REPORT INFORMATION
  Report Type: Spontaneous
  Country: DE (occurrence: DE)
  Receive Date: 20161007
  Receipt Date: 20161010
  Transmission Date: 20170207
  Serious: Yes (Death, Life-Threatening)
  Sender: FDA-Public Use
  Company Number: DE-BAYER-2016-182444

PATIENT
  Age: 51 Year
  Sex: Female
  Weight: 83 kg

DRUGS (2)
  1. ULTRAVIST [Suspect]
     Active Substance: IOPROMIDE
     Indication: BREAST CANCER FEMALE
     Dosage: 100 ML, ONCE
  2. ADRENALIN [Suspect]
     Active Substance: EPINEPHRINE
     Dosage: 1 ML, ONCE
     Route: 042

REACTIONS (8)
  - Nausea [Fatal]
  - Shock [Fatal]
  - Dyspnoea [Fatal]
  - Multiple organ dysfunction syndrome [Fatal]
  - Vomiting [Fatal]
  - Sepsis [Fatal]
  - Angioedema [Fatal]
  - Cardiac arrest [Fatal]

NARRATIVE: CASE EVENT DATE: 20160916
